FAERS Safety Report 7435409-5 (Version None)
Quarter: 2011Q2

REPORT INFORMATION
  Report Type: 
  Country: None (occurrence: None)
  Receive Date: 20110425
  Receipt Date: 20110414
  Transmission Date: 20111010
  Serious: Yes (Other)
  Sender: FDA-Public Use
  Company Number: GB-BAXTER-2011BH011818

PATIENT
  Age: 1 Year
  Sex: Male

DRUGS (8)
  1. MYCOPHENOLATE MOFETIL [Concomitant]
     Indication: PROPHYLAXIS AGAINST GRAFT VERSUS HOST DISEASE
     Route: 065
  2. CYCLOPHOSPHAMIDE [Suspect]
     Indication: STEM CELL TRANSPLANT
     Route: 042
  3. BUSULFAN [Suspect]
     Indication: MUCOPOLYSACCHARIDOSIS I
     Route: 042
  4. CYCLOSPORINE [Concomitant]
     Indication: PROPHYLAXIS AGAINST GRAFT VERSUS HOST DISEASE
     Route: 065
  5. BUSULFAN [Suspect]
     Indication: STEM CELL TRANSPLANT
     Route: 042
  6. CYCLOPHOSPHAMIDE [Suspect]
     Indication: MUCOPOLYSACCHARIDOSIS I
     Route: 042
  7. CAMPATH [Suspect]
     Indication: MUCOPOLYSACCHARIDOSIS I
     Route: 042
  8. CAMPATH [Suspect]
     Indication: STEM CELL TRANSPLANT
     Route: 042

REACTIONS (4)
  - PNEUMOTHORAX [None]
  - RESPIRATORY FAILURE [None]
  - PNEUMONIA RESPIRATORY SYNCYTIAL VIRAL [None]
  - CARDIAC TAMPONADE [None]
